FAERS Safety Report 5165177-1 (Version None)
Quarter: 2006Q4

REPORT INFORMATION
  Report Type: 
  Country: None (occurrence: None)
  Receive Date: 20061127
  Receipt Date: 20061113
  Transmission Date: 20070319
  Serious: Yes (Hospitalization)
  Sender: FDA-Public Use
  Company Number: ST-2006-009373

PATIENT
  Age: 68 Year
  Sex: Female
  Weight: 78.7 kg

DRUGS (13)
  1. BLINDED OLMESARTAN MEDOXOMIL [Suspect]
     Indication: DIABETES MELLITUS NON-INSULIN-DEPENDENT
     Dosage: 10 MG QD PO
     Route: 048
     Dates: start: 20040810, end: 20050125
  2. BLINDED OLMESARTAN MEDOXOMIL [Suspect]
     Indication: DIABETIC NEPHROPATHY
     Dosage: 10 MG QD PO
     Route: 048
     Dates: start: 20040810, end: 20050125
  3. BLINDED OLMESARTAN MEDOXOMIL [Suspect]
     Indication: DIABETES MELLITUS NON-INSULIN-DEPENDENT
     Dosage: 20 MG QD PO
     Route: 048
     Dates: start: 20050126, end: 20051122
  4. BLINDED OLMESARTAN MEDOXOMIL [Suspect]
     Indication: DIABETIC NEPHROPATHY
     Dosage: 20 MG QD PO
     Route: 048
     Dates: start: 20050126, end: 20051122
  5. BLINDED OLMESARTAN MEDOXOMIL [Suspect]
     Indication: DIABETES MELLITUS NON-INSULIN-DEPENDENT
     Dosage: 40 MG QD PO
     Route: 048
     Dates: start: 20051123, end: 20061101
  6. BLINDED OLMESARTAN MEDOXOMIL [Suspect]
     Indication: DIABETIC NEPHROPATHY
     Dosage: 40 MG QD PO
     Route: 048
     Dates: start: 20051123, end: 20061101
  7. RENIVACE [Concomitant]
  8. NORVASC [Concomitant]
  9. SELECTOL [Concomitant]
  10. MEVALOTIN [Concomitant]
  11. UNIPHYL [Concomitant]
  12. AMARYL [Concomitant]
  13. ACTOS [Concomitant]

REACTIONS (6)
  - BACK PAIN [None]
  - DIZZINESS [None]
  - ECZEMA [None]
  - GASTRIC ULCER HAEMORRHAGE [None]
  - GASTROINTESTINAL HAEMORRHAGE [None]
  - TINEA PEDIS [None]
